FAERS Safety Report 4416081-5 (Version None)
Quarter: 2004Q3

REPORT INFORMATION
  Report Type: 
  Country: None (occurrence: None)
  Receive Date: 20040730
  Receipt Date: 20040720
  Transmission Date: 20050211
  Serious: Yes (Other)
  Sender: FDA-Public Use
  Company Number: 2004039373

PATIENT
  Age: 77 Year
  Sex: Male
  Weight: 96.1626 kg

DRUGS (8)
  1. VIAGRA [Suspect]
     Indication: ERECTILE DYSFUNCTION
     Dosage: 50 MG (50 MG, AS NEEDED), ORAL
     Route: 048
  2. ESOMEPRAZOLE (ESOMEPRAZOLE) [Concomitant]
  3. METFORMIN HCL [Concomitant]
  4. ATORVASTATIN HYDROCHLORIDE (METFORMIN HYDROCHLORIDE) [Concomitant]
  5. ATORVASTATIN CALCIUM [Concomitant]
  6. FLUTICASONE PROPIONATE [Concomitant]
  7. AZELASTINE HYDROCHLORIDE (AZELASTINE HYDROCHLORIDE) [Concomitant]
  8. DOXAZOSIN MESYLATE [Concomitant]

REACTIONS (9)
  - ASTHENIA [None]
  - DISTURBANCE IN ATTENTION [None]
  - DRUG EFFECT DECREASED [None]
  - FATIGUE [None]
  - MEDICATION ERROR [None]
  - NASAL CONGESTION [None]
  - SINUS HEADACHE [None]
  - SOMNOLENCE [None]
  - VISION BLURRED [None]
